FAERS Safety Report 20972069 (Version 1)
Quarter: 2022Q2

REPORT INFORMATION
  Report Type: Spontaneous
  Country: US (occurrence: None)
  Receive Date: 20220616
  Receipt Date: 20220616
  Transmission Date: 20220721
  Serious: Yes (Other)
  Sender: FDA-Public Use
  Company Number: 2022A217172

PATIENT

DRUGS (1)
  1. FARXIGA [Suspect]
     Active Substance: DAPAGLIFLOZIN PROPANEDIOL
     Dosage: UNKNOWN
     Route: 048

REACTIONS (5)
  - Pancreatitis [Unknown]
  - Acute kidney injury [Unknown]
  - Hypovolaemia [Unknown]
  - Protein urine present [Unknown]
  - Diarrhoea [Unknown]
